FAERS Safety Report 9783276 (Version 1)
Quarter: 2013Q4

REPORT INFORMATION
  Report Type: Spontaneous
  Country: NL (occurrence: NL)
  Receive Date: 20131226
  Receipt Date: 20131226
  Transmission Date: 20140711
  Serious: Yes (Hospitalization)
  Sender: FDA-Public Use
  Company Number: NL-PFIZER INC-2013366877

PATIENT
  Age: 51 Year
  Sex: Female

DRUGS (17)
  1. FLUCONAZOLE [Suspect]
     Indication: CANDIDA INFECTION
     Dosage: 200 MG, 1X/DAY
     Dates: start: 20131212, end: 20131217
  2. BUPRENORPHINE [Interacting]
     Indication: BACK PAIN
     Dosage: 1 DF, 4X/DAY
     Dates: start: 20121005
  3. TEMGESIC ^ESSEX PHARMA^ [Concomitant]
  4. SYMBICORT [Concomitant]
     Dosage: 2 DF, 2X/DAY
  5. SPIRIVA [Concomitant]
     Dosage: 1 DF, 1X/DAY
  6. RILUTEK [Concomitant]
     Dosage: 50 MG, 2X/DAY
  7. PSYLLIUM [Concomitant]
     Dosage: UNK
  8. PARACETAMOL [Concomitant]
     Dosage: 1000 MG, 4X/DAY
  9. NEXIUM [Concomitant]
     Dosage: 20 MG, 1X/DAY
  10. METFORMIN [Concomitant]
     Dosage: 500 MG, 1X/DAY
  11. LYRICA [Concomitant]
     Dosage: 300 MG, 2X/DAY
  12. LIVOCAB [Concomitant]
     Dosage: 1 GTT, 2X/DAY
  13. HYDROCHLOROTHIAZIDE [Concomitant]
     Dosage: 12.5 MG, 1X/DAY
  14. FRAXIPARIN [Concomitant]
     Dosage: 0.3 ML, 1X/DAY
  15. FEXOFENADINA [Concomitant]
  16. BECLOMETASON [Concomitant]
     Dosage: 2 DF, 2X/DAY
  17. BACLOFEN [Concomitant]
     Dosage: 10 MG, 1X/DAY

REACTIONS (2)
  - Drug interaction [Recovered/Resolved]
  - Somnolence [Recovered/Resolved]
